FAERS Safety Report 12408379 (Version 1)
Quarter: 2016Q2

REPORT INFORMATION
  Report Type: Spontaneous
  Country: US (occurrence: US)
  Receive Date: 20160526
  Receipt Date: 20160526
  Transmission Date: 20160815
  Serious: Yes (Other)
  Sender: FDA-Public Use
  Company Number: US-BAYER-2016-095507

PATIENT
  Sex: Male
  Weight: 68.27 kg

DRUGS (1)
  1. CIPRO [Suspect]
     Active Substance: CIPROFLOXACIN HYDROCHLORIDE
     Indication: PROSTATE INFECTION
     Dosage: 500 MG, BID

REACTIONS (3)
  - Drug ineffective [None]
  - Erosive oesophagitis [None]
  - Gastrooesophageal reflux disease [None]
